FAERS Safety Report 6320658-X (Version None)
Quarter: 2009Q3

REPORT INFORMATION
  Report Type: 
  Country: None (occurrence: None)
  Receive Date: 20090822
  Receipt Date: 20081124
  Transmission Date: 20100115
  Serious: No
  Sender: FDA-Public Use
  Company Number: US-ABBOTT-08P-163-0489468-00

PATIENT
  Sex: Female

DRUGS (20)
  1. NIASPAN [Suspect]
     Indication: DRUG USE FOR UNKNOWN INDICATION
  2. TRAZODONE HCL [Concomitant]
     Indication: DRUG USE FOR UNKNOWN INDICATION
  3. LEVOTHYROXINE SODIUM [Concomitant]
     Indication: DRUG USE FOR UNKNOWN INDICATION
  4. DULOXETINE HYDROCHLORIDE [Concomitant]
     Indication: DRUG USE FOR UNKNOWN INDICATION
  5. DOCUSATE SODIUM [Concomitant]
     Indication: DRUG USE FOR UNKNOWN INDICATION
  6. FISH OIL [Concomitant]
     Indication: DRUG USE FOR UNKNOWN INDICATION
  7. PIOGLITAZONE HCL [Concomitant]
     Indication: DRUG USE FOR UNKNOWN INDICATION
  8. OLMESARTAN MEDOXOMIL [Concomitant]
     Indication: DRUG USE FOR UNKNOWN INDICATION
  9. RALOXIFENE HCL [Concomitant]
     Indication: DRUG USE FOR UNKNOWN INDICATION
  10. TOLTERODINE TARTRATE [Concomitant]
     Indication: DRUG USE FOR UNKNOWN INDICATION
  11. METFORMIN [Concomitant]
     Indication: DRUG USE FOR UNKNOWN INDICATION
  12. MELOXICAM [Concomitant]
     Indication: DRUG USE FOR UNKNOWN INDICATION
  13. OMEPRAZOLE MAGNESIUM [Concomitant]
     Indication: DRUG USE FOR UNKNOWN INDICATION
  14. OMEPRAZOLE MAGNESIUM [Concomitant]
  15. MONTELUKAST [Concomitant]
     Indication: DRUG USE FOR UNKNOWN INDICATION
  16. FENOFIBRATE [Concomitant]
     Indication: DRUG USE FOR UNKNOWN INDICATION
  17. GLUCOSAMINE [Concomitant]
     Indication: DRUG USE FOR UNKNOWN INDICATION
  18. M.V.I. [Concomitant]
     Indication: DRUG USE FOR UNKNOWN INDICATION
  19. FISH OIL [Concomitant]
  20. IRON [Concomitant]
     Indication: DRUG USE FOR UNKNOWN INDICATION

REACTIONS (5)
  - EAR DISCOMFORT [None]
  - ERYTHEMA [None]
  - FEELING HOT [None]
  - FLUSHING [None]
  - PRURITUS [None]
